FAERS Safety Report 6639299-X (Version None)
Quarter: 2010Q1

REPORT INFORMATION
  Report Type: 
  Country: None (occurrence: None)
  Receive Date: 20100315
  Receipt Date: 20100304
  Transmission Date: 20100710
  Serious: Yes (Life-Threatening, Hospitalization)
  Sender: FDA-Public Use
  Company Number: 96361

PATIENT
  Sex: Male

DRUGS (1)
  1. DACARBAZINE [Suspect]
     Indication: MALIGNANT MELANOMA
     Dosage: 91G TOTAL (53MG/M2)

REACTIONS (3)
  - ACUTE MYELOID LEUKAEMIA [None]
  - DYSPNOEA [None]
  - HAEMATOCRIT DECREASED [None]
